FAERS Safety Report 5096058-X (Version None)
Quarter: 2006Q3

REPORT INFORMATION
  Report Type: 
  Country: None (occurrence: None)
  Receive Date: 20060905
  Receipt Date: 20060828
  Transmission Date: 20061208
  Serious: Yes (Hospitalization)
  Sender: FDA-Public Use
  Company Number: 2006CG01414

PATIENT
  Age: 80 Year
  Sex: Female
  Weight: 65 kg

DRUGS (7)
  1. ZOLTUM [Suspect]
     Route: 048
     Dates: end: 20060720
  2. LOVENOX [Suspect]
     Route: 058
     Dates: start: 20060601
  3. BIPRETERAX [Suspect]
     Indication: ESSENTIAL HYPERTENSION
     Route: 048
     Dates: end: 20060710
  4. EZETROL [Suspect]
     Route: 048
     Dates: start: 20060201, end: 20060710
  5. TEMERIT [Suspect]
     Indication: ESSENTIAL HYPERTENSION
     Route: 048
     Dates: end: 20060720
  6. PHYSIOTENS [Suspect]
     Indication: ESSENTIAL HYPERTENSION
     Route: 048
  7. TEMESTA [Suspect]

REACTIONS (9)
  - C-REACTIVE PROTEIN INCREASED [None]
  - CREATININE RENAL CLEARANCE DECREASED [None]
  - CRYOGLOBULINAEMIA [None]
  - GAMMA-GLUTAMYLTRANSFERASE INCREASED [None]
  - INFLAMMATION [None]
  - LEUKOCYTOCLASTIC VASCULITIS [None]
  - LEUKOCYTOSIS [None]
  - PYREXIA [None]
  - URTICARIA GENERALISED [None]
